FAERS Safety Report 8809978 (Version 1)
Quarter: 2012Q4

REPORT INFORMATION
  Report Type: 
  Country: US (occurrence: US)
  Receive Date: 20120926
  Receipt Date: 20120926
  Transmission Date: 20130627
  Serious: No
  Sender: FDA-Public Use
  Company Number: US-PFIZER INC-2012238157

PATIENT
  Age: 54 Year
  Sex: Male
  Weight: 86.17 kg

DRUGS (8)
  1. LYRICA [Suspect]
     Indication: DIABETIC NEUROPATHY
     Dosage: 75 mg, daily
     Dates: start: 2012, end: 2012
  2. COMBIVENT [Concomitant]
     Indication: CHRONIC OBSTRUCTIVE PULMONARY DISEASE
     Dosage: UNK
  3. METFORMIN [Concomitant]
     Indication: DIABETES MELLITUS
     Dosage: 500 mg, 2x/day
  4. INSULIN [Concomitant]
     Indication: DIABETES MELLITUS
     Dosage: 15 units in morning and 24 units in night
  5. SIMVASTATIN [Concomitant]
     Indication: BLOOD CHOLESTEROL ABNORMAL
     Dosage: half tablet of 40 mg, daily
  6. LISINOPRIL [Concomitant]
     Indication: HYPERTENSION
     Dosage: 20 mg, daily
  7. AMLODIPINE [Concomitant]
     Indication: HYPERTENSION
     Dosage: 5 mg, daily
  8. CETIRIZINE HYDROCHLORIDE [Concomitant]
     Indication: HYPERSENSITIVITY
     Dosage: 10 mg, daily

REACTIONS (2)
  - Drug ineffective [Unknown]
  - Pain in extremity [Recovered/Resolved]
